FAERS Safety Report 7854375-1 (Version None)
Quarter: 2011Q4

REPORT INFORMATION
  Report Type: 
  Country: None (occurrence: None)
  Receive Date: 20111026
  Receipt Date: 20111019
  Transmission Date: 20120403
  Serious: Yes (Death)
  Sender: FDA-Public Use
  Company Number: KR-PFIZER INC-2011224787

PATIENT
  Age: 56 Year
  Sex: Male
  Weight: 62.5 kg

DRUGS (24)
  1. FAMOTIDINE [Concomitant]
     Indication: PROPHYLAXIS
     Dosage: UNK
     Dates: start: 20110615
  2. CODEINE [Concomitant]
     Indication: COUGH
     Dosage: UNK
     Dates: start: 20110511
  3. CHLORHEXIDINE GLUCONATE [Concomitant]
     Indication: PATHOLOGICAL FRACTURE
     Dosage: UNK
     Dates: start: 20110913, end: 20110913
  4. NICARDIPINE [Concomitant]
     Indication: PATHOLOGICAL FRACTURE
     Dosage: UNK
     Dates: start: 20110909, end: 20110909
  5. LACTULOSE [Concomitant]
     Indication: CONSTIPATION
     Dosage: UNK
     Dates: start: 20110831
  6. ROCURONIUM BROMIDE [Concomitant]
     Indication: PATHOLOGICAL FRACTURE
     Dosage: UNK
     Dates: start: 20110909, end: 20110909
  7. SALBUTAMOL [Concomitant]
     Indication: PATHOLOGICAL FRACTURE
     Dosage: UNK
     Dates: start: 20110909, end: 20110913
  8. PETHIDINE [Concomitant]
     Indication: PATHOLOGICAL FRACTURE
     Dosage: UNK
     Dates: start: 20110909, end: 20110909
  9. MAGNESIUM OXIDE [Concomitant]
     Indication: CONSTIPATION
     Dosage: UNK
     Dates: start: 20110525
  10. CEFAZOLIN [Concomitant]
     Indication: PATHOLOGICAL FRACTURE
     Dosage: UNK
     Dates: start: 20110908, end: 20110909
  11. DEXAMETHASONE [Concomitant]
     Indication: PATHOLOGICAL FRACTURE
     Dosage: UNK
     Dates: start: 20110907, end: 20110909
  12. EPHEDRINE HYDROCHLORIDE [Concomitant]
     Indication: PATHOLOGICAL FRACTURE
     Dosage: UNK
     Dates: start: 20110909, end: 20110909
  13. PYRIDOSTIGMINE [Concomitant]
     Indication: PATHOLOGICAL FRACTURE
     Dosage: UNK
     Dates: start: 20110909, end: 20110909
  14. OXYCODONE [Concomitant]
     Indication: PAIN
     Dosage: UNK
     Dates: start: 20110525
  15. AMBROXOL [Concomitant]
     Indication: PRODUCTIVE COUGH
     Dosage: UNK
     Dates: start: 20110726
  16. METOCLOPRAMIDE [Concomitant]
     Indication: PATHOLOGICAL FRACTURE
     Dosage: UNK
     Dates: start: 20110909
  17. CRIZOTINIB [Suspect]
     Indication: NON-SMALL CELL LUNG CANCER
     Dosage: 250 MG, 2X/DAY
     Route: 048
     Dates: start: 20110817, end: 20110921
  18. IPRATROPIUM [Concomitant]
     Indication: PATHOLOGICAL FRACTURE
     Dosage: UNK
     Dates: start: 20110908, end: 20110913
  19. BISACODYL [Concomitant]
     Indication: PATHOLOGICAL FRACTURE
     Dosage: UNK
     Dates: start: 20110912
  20. LABETALOL [Concomitant]
     Indication: PATHOLOGICAL FRACTURE
     Dosage: UNK
     Dates: start: 20110909, end: 20110909
  21. TERRAMYCIN V CAP [Concomitant]
     Indication: PATHOLOGICAL FRACTURE
     Dosage: UNK
     Dates: start: 20110908, end: 20110908
  22. GLYCOPYRROLATE [Concomitant]
     Indication: PATHOLOGICAL FRACTURE
     Dosage: UNK
     Dates: start: 20110909, end: 20110909
  23. PROPOFOL [Concomitant]
     Indication: PATHOLOGICAL FRACTURE
     Dosage: UNK
     Dates: start: 20110909, end: 20110909
  24. REMIFENTANIL [Concomitant]
     Indication: PATHOLOGICAL FRACTURE
     Dosage: UNK
     Dates: start: 20110909, end: 20110909

REACTIONS (1)
  - DEATH [None]
